FAERS Safety Report 10078287 (Version 2)
Quarter: 2014Q2

REPORT INFORMATION
  Report Type: Spontaneous
  Country: AU (occurrence: AU)
  Receive Date: 20140415
  Receipt Date: 20140429
  Transmission Date: 20141212
  Serious: Yes (Other)
  Sender: FDA-Public Use
  Company Number: AU-RANBAXY-2014RR-80190

PATIENT
  Age: 8 Month
  Sex: Male
  Weight: 8 kg

DRUGS (3)
  1. CODEINE [Suspect]
     Indication: PRODUCT USED FOR UNKNOWN INDICATION
     Dosage: 8MG
     Route: 042
     Dates: start: 19940315
  2. PARACETAMOL [Concomitant]
     Indication: PRODUCT USED FOR UNKNOWN INDICATION
     Dosage: 160MG, PRN
     Route: 048
     Dates: start: 19940312, end: 19940317
  3. PETHIDINE [Concomitant]
     Indication: PRODUCT USED FOR UNKNOWN INDICATION
     Dosage: 4MG, PRN
     Route: 042
     Dates: start: 19940315

REACTIONS (4)
  - Peripheral ischaemia [Recovered/Resolved]
  - Dyspnoea [Recovered/Resolved]
  - Respiratory depression [Recovered/Resolved]
  - Cyanosis [Recovered/Resolved]
